FAERS Safety Report 11993548 (Version 1)
Quarter: 2016Q1

REPORT INFORMATION
  Report Type: Spontaneous
  Country: US (occurrence: None)
  Receive Date: 20160202
  Receipt Date: 20160202
  Transmission Date: 20160526
  Serious: Yes (Hospitalization)
  Sender: FDA-Public Use
  Company Number: None

PATIENT
  Age: 56 Year
  Sex: Female
  Weight: 56.4 kg

DRUGS (1)
  1. CISPLATIN. [Suspect]
     Active Substance: CISPLATIN
     Dates: end: 20160118

REACTIONS (8)
  - Tinnitus [None]
  - Paraesthesia oral [None]
  - Decreased appetite [None]
  - Dry mouth [None]
  - Oral pain [None]
  - Nausea [None]
  - Ear pain [None]
  - Hypoacusis [None]

NARRATIVE: CASE EVENT DATE: 20160120
